FAERS Safety Report 19501296 (Version 1)
Quarter: 2021Q3

REPORT INFORMATION
  Report Type: Spontaneous
  Country: DE (occurrence: DE)
  Receive Date: 20210707
  Receipt Date: 20210707
  Transmission Date: 20211014
  Serious: Yes (Hospitalization, Other)
  Sender: FDA-Public Use
  Company Number: DE-009507513-2106DEU008095

PATIENT
  Age: 62 Year
  Sex: Male
  Weight: 82 kg

DRUGS (3)
  1. TRULICITY [Suspect]
     Active Substance: DULAGLUTIDE
     Indication: DIABETES MELLITUS INADEQUATE CONTROL
     Dosage: 1 X WEEKLY; SOLUTION FOR INJECTION IN PRE?FILLED PEN
     Route: 058
     Dates: start: 20201201, end: 20210614
  2. DOXYCYCLINE. [Suspect]
     Active Substance: DOXYCYCLINE
     Indication: ERYTHEMA MIGRANS
     Dosage: 200MG, 1X DAILY
     Route: 048
     Dates: start: 20210608, end: 20210614
  3. JANUMET [Suspect]
     Active Substance: METFORMIN HYDROCHLORIDE\SITAGLIPTIN PHOSPHATE
     Indication: DIABETES MELLITUS INADEQUATE CONTROL
     Dosage: IN THE MORNING AND EVENING ONE TABLET 850/25
     Route: 048
     Dates: start: 2021, end: 20210614

REACTIONS (5)
  - Hyperglycaemia [Not Recovered/Not Resolved]
  - Renal failure [Not Recovered/Not Resolved]
  - Asthenia [Not Recovered/Not Resolved]
  - Somnolence [Not Recovered/Not Resolved]
  - Pancreatitis [Not Recovered/Not Resolved]

NARRATIVE: CASE EVENT DATE: 20210614
